FAERS Safety Report 5949659-8 (Version None)
Quarter: 2008Q4

REPORT INFORMATION
  Report Type: 
  Country: None (occurrence: None)
  Receive Date: 20081021
  Receipt Date: 20080125
  Transmission Date: 20090506
  Serious: Yes (Other)
  Sender: FDA-Public Use
  Company Number: HQWYE408723JUL04

PATIENT
  Age: 58 Year
  Sex: Female

DRUGS (4)
  1. PREMARIN [Suspect]
  2. CYCRIN [Suspect]
  3. FEMHRT [Suspect]
  4. PREMPHASE 14/14 [Suspect]

REACTIONS (1)
  - BREAST CANCER [None]
